FAERS Safety Report 16101942 (Version 2)
Quarter: 2019Q2

REPORT INFORMATION
  Report Type: Spontaneous
  Country: KR (occurrence: KR)
  Receive Date: 20190321
  Receipt Date: 20190403
  Transmission Date: 20190711
  Serious: No
  Sender: FDA-Public Use
  Company Number: KR-009507513-1902KOR004995

PATIENT
  Sex: Male

DRUGS (10)
  1. KEYTRUDA [Suspect]
     Active Substance: PEMBROLIZUMAB
     Indication: METASTASES TO LYMPH NODES
     Dosage: QUANTITY 2; DAYS 1
     Dates: start: 20190216
  2. FOIPAN [Concomitant]
     Active Substance: CAMOSTAT MESYLATE
     Dosage: QUANTITY 1; DAYS 1
     Route: 048
     Dates: start: 20190215
  3. PYRIDOXINE [Concomitant]
     Active Substance: PYRIDOXINE
     Dosage: QUANTITY 1; DAYS 23
     Route: 048
     Dates: start: 20190215
  4. FOIPAN [Concomitant]
     Active Substance: CAMOSTAT MESYLATE
     Dosage: QUANTITY 1; DAYS 2
     Route: 048
     Dates: start: 20190127
  5. FOIPAN [Concomitant]
     Active Substance: CAMOSTAT MESYLATE
     Dosage: QUANTITY 1; DAYS 21
     Route: 048
     Dates: start: 20190128
  6. PYRIDOXINE [Concomitant]
     Active Substance: PYRIDOXINE
     Dosage: QUANTITY 1; DAYS 18
     Route: 048
     Dates: start: 20190311
  7. FOIPAN [Concomitant]
     Active Substance: CAMOSTAT MESYLATE
     Dosage: QUANTITY 2; DAYS 1/ QUANTITY 3, DAYS 23
     Route: 048
     Dates: start: 20190216
  8. PYRIDOXINE [Concomitant]
     Active Substance: PYRIDOXINE
     Dosage: QUANTITY 1; DAYS 21
     Route: 048
     Dates: start: 20190128
  9. KEYTRUDA [Suspect]
     Active Substance: PEMBROLIZUMAB
     Indication: PANCREATIC CARCINOMA METASTATIC
     Dosage: QUANTITY 2; DAYS 1
     Dates: start: 20190128
  10. KEYTRUDA [Suspect]
     Active Substance: PEMBROLIZUMAB
     Dosage: QUANTITY 2; DAYS 1
     Dates: start: 20190311

REACTIONS (1)
  - Product use in unapproved indication [Unknown]

NARRATIVE: CASE EVENT DATE: 20190128
